FAERS Safety Report 21520639 (Version 3)
Quarter: 2022Q4

REPORT INFORMATION
  Report Type: Spontaneous
  Country: IN (occurrence: IN)
  Receive Date: 20221028
  Receipt Date: 20221129
  Transmission Date: 20230113
  Serious: Yes (Other)
  Sender: FDA-Public Use
  Company Number: IN-PFIZER INC-PV202200090719

PATIENT
  Age: 75 Year
  Sex: Male

DRUGS (1)
  1. CRIZOTINIB [Suspect]
     Active Substance: CRIZOTINIB
     Dosage: 250 MG, 2X/DAY
     Route: 048

REACTIONS (10)
  - Urinary tract obstruction [Unknown]
  - Electrocardiogram QT interval abnormal [Unknown]
  - Acute kidney injury [Unknown]
  - Lower urinary tract symptoms [Unknown]
  - Dysuria [Unknown]
  - Constipation [Unknown]
  - Blood creatinine increased [Unknown]
  - Pain [Unknown]
  - Haemoglobin decreased [Unknown]
  - Blood urea increased [Unknown]
